FAERS Safety Report 4338266-9 (Version None)
Quarter: 2004Q2

REPORT INFORMATION
  Report Type: 
  Country: None (occurrence: None)
  Receive Date: 20040409
  Receipt Date: 20040401
  Transmission Date: 20050107
  Serious: Yes (Death, Hospitalization, Congenital Anomaly)
  Sender: FDA-Public Use
  Company Number: 04P-056-0249747-00

PATIENT
  Age: 1 Day
  Sex: Male
  Weight: 2.3 kg

DRUGS (6)
  1. KALETRA [Suspect]
  2. BROMAZEPAM [Suspect]
  3. ZIDOVUDINE W/LAMIVUDINE [Suspect]
     Dosage: 1 IN 1 D
  4. ZOLPIDEM [Suspect]
  5. ZIDOVUDINE [Suspect]
     Indication: HIV INFECTION
     Dates: start: 20040107, end: 20040113
  6. BUPRENORPHINE HYDROCHLORIDE [Suspect]

REACTIONS (16)
  - ACUTE PULMONARY OEDEMA [None]
  - CARDIAC FAILURE [None]
  - COAGULOPATHY [None]
  - COMPLICATIONS OF MATERNAL EXPOSURE TO THERAPEUTIC DRUGS [None]
  - CONGENITAL CARDIAC SEPTAL DEFECT [None]
  - FOETAL DISTRESS SYNDROME [None]
  - HYPOGLYCAEMIA [None]
  - HYPONATRAEMIA [None]
  - HYPOXIA [None]
  - LACTIC ACIDOSIS [None]
  - MATERNAL DRUGS AFFECTING FOETUS [None]
  - RENAL DISORDER [None]
  - RENAL FAILURE [None]
  - THROMBOCYTOPENIA [None]
  - TRISOMY 21 [None]
  - VENA CAVA THROMBOSIS [None]
